FAERS Safety Report 23539228 (Version 1)
Quarter: 2024Q1

REPORT INFORMATION
  Report Type: Spontaneous
  Country: CA (occurrence: CA)
  Receive Date: 20240219
  Receipt Date: 20240219
  Transmission Date: 20240410
  Serious: Yes (Life-Threatening)
  Sender: FDA-Public Use
  Company Number: CA-TEVA-VS-3157870

PATIENT
  Age: 49 Year
  Sex: Female
  Weight: 81 kg

DRUGS (1)
  1. VALACYCLOVIR HYDROCHLORIDE [Suspect]
     Active Substance: VALACYCLOVIR HYDROCHLORIDE
     Indication: Olfactory nerve disorder
     Dosage: TIME INTERVAL: 0.33333333 DAYS
     Route: 048

REACTIONS (5)
  - Hypersensitivity [Recovering/Resolving]
  - Hypoaesthesia oral [Recovering/Resolving]
  - Lip swelling [Recovering/Resolving]
  - Tongue disorder [Recovering/Resolving]
  - Tremor [Recovering/Resolving]
